FAERS Safety Report 14338164 (Version 2)
Quarter: 2018Q1

REPORT INFORMATION
  Report Type: Spontaneous
  Country: DE (occurrence: DE)
  Receive Date: 20171229
  Receipt Date: 20180110
  Transmission Date: 20180509
  Serious: Yes (Hospitalization, Other)
  Sender: FDA-Public Use
  Company Number: DE-JNJFOC-20171231112

PATIENT
  Sex: Female

DRUGS (4)
  1. REMICADE [Suspect]
     Active Substance: INFLIXIMAB
     Indication: CROHN^S DISEASE
     Route: 042
     Dates: start: 201611
  2. OPIPRAMOL [Concomitant]
     Active Substance: OPIPRAMOL
     Route: 065
     Dates: start: 20170929
  3. REMICADE [Suspect]
     Active Substance: INFLIXIMAB
     Indication: CROHN^S DISEASE
     Route: 042
     Dates: start: 20170106
  4. PANTAZOLE [Concomitant]
     Active Substance: PANTOPRAZOLE SODIUM
     Indication: PROPHYLAXIS
     Route: 048
     Dates: start: 20171105

REACTIONS (6)
  - Diverticulitis [Unknown]
  - Bile duct stone [Unknown]
  - Drug specific antibody [Unknown]
  - Abnormal weight gain [Unknown]
  - Crohn^s disease [Unknown]
  - Treatment failure [Unknown]
